FAERS Safety Report 8857141 (Version 1)
Quarter: 2012Q4

REPORT INFORMATION
  Report Type: 
  Country: US (occurrence: US)
  Receive Date: 20121023
  Receipt Date: 20121023
  Transmission Date: 20130627
  Serious: No
  Sender: FDA-Public Use
  Company Number: US-AMGEN-USASP2012055568

PATIENT
  Sex: Female
  Weight: 68.03 kg

DRUGS (12)
  1. ENBREL [Suspect]
     Indication: PRODUCT USED FOR UNKNOWN INDICATION
     Dosage: 50 mg, qwk
     Route: 058
  2. FORTEO [Concomitant]
     Dosage: UNK
  3. ZYRTEC [Concomitant]
     Dosage: 5 mg, UNK
  4. TRILEPTAL [Concomitant]
     Dosage: 150 mg, UNK
  5. AVAPRO [Concomitant]
     Dosage: 75 mg, UNK
  6. HYDROCHLOROTHIAZID [Concomitant]
     Dosage: 200 mg, UNK
  7. DICLOFENAC [Concomitant]
     Dosage: 25 mg, UNK
  8. GLUCOS [Concomitant]
     Dosage: UNK
  9. VITAMIN D /00107901/ [Concomitant]
     Dosage: 1000 unit, UNK
  10. KEPPRA [Concomitant]
     Dosage: 250 mg, UNK
  11. MULTIMIX [Concomitant]
     Dosage: UNK
  12. CALCIUM D                          /00944201/ [Concomitant]
     Dosage: UNK

REACTIONS (1)
  - Pain [Unknown]
